FAERS Safety Report 8515430-6 (Version None)
Quarter: 2012Q3

REPORT INFORMATION
  Report Type: 
  Country: None (occurrence: None)
  Receive Date: 20120717
  Receipt Date: 20120709
  Transmission Date: 20120928
  Serious: Yes (Other)
  Sender: FDA-Public Use
  Company Number: US-BAYER-2012-058534

PATIENT
  Age: 79 Year
  Sex: Female
  Weight: 89.9 kg

DRUGS (21)
  1. HUMALOG [Concomitant]
  2. IMDUR [Concomitant]
     Dosage: 30 MG, TID
  3. NITROGLYCERIN [Concomitant]
     Route: 060
  4. SOLU-CORTEF [Concomitant]
     Dosage: 100 MG, UNK
     Dates: start: 20041012, end: 20041012
  5. MONOCLONAL ANTIBODIES [Concomitant]
     Dosage: 180 MG FOLLOWED BY 25/CCHR INFUSION
     Dates: start: 20041012, end: 20041012
  6. LASIX [Concomitant]
     Dosage: 20 MG, UNK
     Dates: start: 20041012, end: 20041012
  7. MONOCLONAL ANTIBODIES [Concomitant]
  8. NPH INSULIN [Concomitant]
  9. PRAVACHOL [Concomitant]
     Dosage: 40 MG, ONCE
  10. VERSED [Concomitant]
     Dosage: UNK
     Dates: start: 20041012, end: 20041012
  11. BENADRYL [Concomitant]
     Dosage: 50 MG, UNK
     Dates: start: 20041012, end: 20041012
  12. TRASYLOL [Suspect]
     Indication: CORONARY ARTERY BYPASS
     Dosage: 100 ML PUMP PRIME, 25 CC/HR INFUSION
     Route: 042
     Dates: start: 20041012, end: 20041012
  13. LISINOPRIL [Concomitant]
     Dosage: 40 MG, ONCE
  14. HYDROCHLOROTHIAZIDE [Concomitant]
     Dosage: 50 MG, ONCE
  15. LOPRESSOR [Concomitant]
     Dosage: 100 MG, BID
  16. DOXEPIN [Concomitant]
     Dosage: 50 MG, ONCE
  17. PAVULON [Concomitant]
     Dosage: UNK
     Dates: start: 20041012, end: 20041012
  18. ASPIRIN [Concomitant]
     Dosage: 81 MG, ONCE
  19. RELAFEN [Concomitant]
     Dosage: 750 MG, BID
  20. HEPARIN [Concomitant]
     Dosage: UNK
     Dates: start: 20040828
  21. VANCOMYCIN [Concomitant]
     Dosage: 1 G, ONCE
     Dates: start: 20041012, end: 20041012

REACTIONS (6)
  - RENAL FAILURE ACUTE [None]
  - AZOTAEMIA [None]
  - RENAL FAILURE [None]
  - RENAL TUBULAR NECROSIS [None]
  - ATRIAL FIBRILLATION [None]
  - OEDEMA PERIPHERAL [None]
